FAERS Safety Report 9026675 (Version 1)
Quarter: 2012Q4

REPORT INFORMATION
  Report Type: Spontaneous
  Country: US (occurrence: None)
  Receive Date: 20121231
  Receipt Date: 20121231
  Transmission Date: 20130627
  Serious: Yes (Other)
  Sender: FDA-Public Use
  Company Number: 2012033294

PATIENT
  Age: 11 Year
  Sex: Female
  Weight: 72.12 kg

DRUGS (18)
  1. HIZENTRA (IMMUNOGLOBULIN HUMAN NORMAL) [Suspect]
     Indication: HYPOGAMMAGLOBULINEMIA
     Dosage: 10 g 1x/week, 3-4 sites over 1-2 hours Subcutaneous
     Dates: start: 20120814, end: 20120814
  2. HIZENTRA (IMMUNOGLOBULIN HUMAN NORMAL) [Suspect]
     Indication: HYPOGAMMAGLOBULINEMIA
     Dosage: 10 g 1x/week, 3-4 sites over 1-2 hours Subcutaneous
     Dates: start: 20140904, end: 20120814
  3. HIZENTRA (IMMUNOGLOBULIN HUMAN NORMAL) [Suspect]
     Indication: HYPOGAMMAGLOBULINEMIA
     Dosage: 10 g 1x/week, 3-4 sites over 1-2 hours Subcutaneous
     Dates: start: 20140821, end: 20120821
  4. HIZENTRA (IMMUNOGLOBULIN HUMAN NORMAL) [Suspect]
     Indication: HYPOGAMMAGLOBULINEMIA
     Dosage: 10 g 1x/week, 3-4 sites over 1-2 hours Subcutaneous
     Dates: start: 20120821, end: 20120821
  5. HIZENTRA (IMMUNOGLOBULIN HUMAN NORMAL) [Suspect]
     Indication: HYPOGAMMAGLOBULINEMIA
     Route: 058
     Dates: start: 20120830, end: 20120830
  6. HIZENTRA (IMMUNOGLOBULIN HUMAN NORMAL) [Suspect]
     Indication: HYPOGAMMAGLOBULINEMIA
     Dosage: 10 g 1x/week, 3-4 sites over 1-2 hours Subcutaneous
  7. HIZENTRA (IMMUNOGLOBULIN HUMAN NORMAL) [Suspect]
     Indication: HYPOGAMMAGLOBULINEMIA
     Dosage: 10 g 1x/week, 3-4 sites over 1-2 hours Subcutaneous
  8. DIPHENHYDRAMINE (DIPHENHYDRAMINE) [Concomitant]
  9. LIDOCAINE/PRILOCAINE (EMLA /00675501/) [Concomitant]
  10. EPI-PEN (EPINEPHRINE HYDROCHLORIDE) [Concomitant]
  11. PEPCID (FAMOTIDINE) [Concomitant]
  12. SYNTHROID (LEVOTHYROXINE SODIUM) [Concomitant]
  13. METFORMIN (METFORMIN) [Concomitant]
  14. ACETAMINOPHEN (PARACETAMOL) [Concomitant]
  15. VITAMIN D (ERGOCALCIFEROL) [Concomitant]
  16. MULTIVITAMINS (MULTIVITAMINS) [Concomitant]
  17. PREVACID (LANSOPRAZOLE) [Concomitant]
  18. ERYTHROMYCIN (ERYTHROMYCIN) [Concomitant]

REACTIONS (4)
  - Abdominal pain [None]
  - Infusion site erythema [None]
  - Skin infection [None]
  - Staphylococcal infection [None]
